FAERS Safety Report 6613106-3 (Version None)
Quarter: 2010Q1

REPORT INFORMATION
  Report Type: 
  Country: None (occurrence: None)
  Receive Date: 20100223
  Receipt Date: 20100216
  Transmission Date: 20100710
  Serious: Yes (Disabling)
  Sender: FDA-Public Use
  Company Number: OSCN-NO-0903S-0131

PATIENT
  Age: 58 Year
  Sex: Male

DRUGS (2)
  1. OMNISCAN [Suspect]
     Indication: PROCTALGIA
     Dosage: 15 ML, SINGLE DOSE, I.V., 20 ML, SINGLE DOSE, I.V.
     Route: 042
     Dates: start: 20060201, end: 20060201
  2. OMNISCAN [Suspect]
     Indication: PROCTALGIA
     Dosage: 15 ML, SINGLE DOSE, I.V., 20 ML, SINGLE DOSE, I.V.
     Route: 042
     Dates: start: 20060228, end: 20060228

REACTIONS (10)
  - CONDITION AGGRAVATED [None]
  - GAIT DISTURBANCE [None]
  - JOINT SWELLING [None]
  - MALE SEXUAL DYSFUNCTION [None]
  - NEUROPATHY PERIPHERAL [None]
  - OEDEMA PERIPHERAL [None]
  - PAIN IN EXTREMITY [None]
  - PAINFUL ERECTION [None]
  - PROSTATIC PAIN [None]
  - SKIN FISSURES [None]
